FAERS Safety Report 9808104 (Version 1)
Quarter: 2014Q1

REPORT INFORMATION
  Report Type: Spontaneous
  Country: US (occurrence: US)
  Receive Date: 20140110
  Receipt Date: 20140110
  Transmission Date: 20141002
  Serious: Yes (Hospitalization)
  Sender: FDA-Public Use
  Company Number: US-NOVOPROD-396987

PATIENT
  Age: 68 Year
  Sex: Male
  Weight: 97.51 kg

DRUGS (2)
  1. NOVOLOG FLEXPEN [Suspect]
     Indication: TYPE 2 DIABETES MELLITUS
     Dosage: 30 UNITS BEFORE BREAKFAST, 30 UNITS BEFORE LUNCH, 30 UNITS BEFORE DINNER
     Route: 058
  2. LEVEMIR FLEXPEN [Suspect]
     Indication: TYPE 2 DIABETES MELLITUS
     Dosage: 50 UNITS IN AM, 85 UNITS IN PM
     Route: 058

REACTIONS (2)
  - Injection site cellulitis [Recovered/Resolved]
  - Injection site cellulitis [Recovered/Resolved]
